FAERS Safety Report 5199871-3 (Version None)
Quarter: 2006Q4

REPORT INFORMATION
  Report Type: 
  Country: None (occurrence: None)
  Receive Date: 20061229
  Receipt Date: 20061222
  Transmission Date: 20070319
  Serious: No
  Sender: FDA-Public Use
  Company Number: B0419222A

PATIENT
  Age: 35 Year
  Sex: Female

DRUGS (9)
  1. COMBIVIR [Suspect]
     Indication: PROPHYLAXIS AGAINST HIV INFECTION
     Dosage: TWICE PER DAY ORAL
     Route: 048
     Dates: start: 20060216, end: 20060227
  2. COMBIVIR [Suspect]
  3. RITONAVIR TABLET (RITONAVIR) [Suspect]
     Indication: PROPHYLAXIS AGAINST HIV INFECTION
     Dosage: TWICE PER DAY ORAL
     Route: 048
     Dates: start: 20060216, end: 20060317
  4. '' [Suspect]
  5. 00 [Suspect]
  6. LEXIVA TABLET (FOSAMPRENAVIR) [Suspect]
  7. LEXIVA TABLET (FOSAMPRENAVIR) [Suspect]
  8. BROMAZEPAM [Concomitant]
  9. ORAL CONTRACEPTIVE [Concomitant]

REACTIONS (4)
  - ANTI-HBS ANTIBODY POSITIVE [None]
  - RASH GENERALISED [None]
  - RASH MACULO-PAPULAR [None]
  - URTICARIA [None]
